FAERS Safety Report 4442038-4 (Version None)
Quarter: 2004Q3

REPORT INFORMATION
  Report Type: 
  Country: None (occurrence: None)
  Receive Date: 20040901
  Receipt Date: 20040819
  Transmission Date: 20050211
  Serious: Yes (Hospitalization)
  Sender: FDA-Public Use
  Company Number: 02100-JPN-04-0234

PATIENT
  Age: 85 Year
  Sex: Male

DRUGS (5)
  1. CILOSTAZOL [Suspect]
     Indication: CEREBRAL INFARCTION
     Dosage: 200 MG/100 MG ORAL
     Route: 048
     Dates: start: 20020401, end: 20031128
  2. CILOSTAZOL [Suspect]
     Indication: CEREBRAL INFARCTION
     Dosage: 200 MG/100 MG ORAL
     Route: 048
     Dates: start: 20031202, end: 20040601
  3. AMLODIPINE BESYLATE [Concomitant]
  4. ASPIRIN [Concomitant]
  5. MEXILETINE HYDROCHLORIDE [Concomitant]

REACTIONS (1)
  - ARRHYTHMIA [None]
